FAERS Safety Report 19801275 (Version 1)
Quarter: 2021Q3

REPORT INFORMATION
  Report Type: Spontaneous
  Country: DE (occurrence: DE)
  Receive Date: 20210907
  Receipt Date: 20210907
  Transmission Date: 20211014
  Serious: Yes (Other)
  Sender: FDA-Public Use
  Company Number: DE-FERRINGPH-2021FE05779

PATIENT
  Sex: Male

DRUGS (2)
  1. GONADORELIN [Suspect]
     Active Substance: GONADORELIN
     Indication: PRODUCT USED FOR UNKNOWN INDICATION
     Dosage: UNK
     Route: 065
  2. ERLEADA [Suspect]
     Active Substance: APALUTAMIDE
     Indication: PRODUCT USED FOR UNKNOWN INDICATION
     Dosage: UNK
     Route: 048
     Dates: start: 201911

REACTIONS (4)
  - Reproductive tract hypoplasia, male [Unknown]
  - Disturbance in sexual arousal [Unknown]
  - Libido decreased [Unknown]
  - Metastases to bone [Unknown]
